FAERS Safety Report 5268349-0 (Version None)
Quarter: 2007Q1

REPORT INFORMATION
  Report Type: 
  Country: None (occurrence: None)
  Receive Date: 20070314
  Receipt Date: 20070314
  Transmission Date: 20070707
  Serious: No
  Sender: FDA-Public Use
  Company Number: None

PATIENT
  Sex: Female
  Weight: 66.8 kg

DRUGS (2)
  1. CARBOPLATIN [Suspect]
     Dosage: 513 MG
  2. TAXOL [Suspect]
     Dosage: 310 MG

REACTIONS (2)
  - DRUG TOXICITY [None]
  - NEUTROPHIL COUNT DECREASED [None]
